FAERS Safety Report 10237626 (Version 1)
Quarter: 2014Q2

REPORT INFORMATION
  Report Type: Spontaneous
  Country: BR (occurrence: BR)
  Receive Date: 20140616
  Receipt Date: 20140616
  Transmission Date: 20141212
  Serious: Yes (Other)
  Sender: FDA-Public Use
  Company Number: BR-AMGEN INC.-BRASP2014044314

PATIENT
  Age: 53 Year
  Sex: Female
  Weight: 57 kg

DRUGS (4)
  1. ENBREL [Suspect]
     Indication: PSORIATIC ARTHROPATHY
     Dosage: 50 MG, 1X/WEEK
     Route: 058
     Dates: start: 201212
  2. GASTRIUM                           /00498201/ [Concomitant]
     Dosage: 1 TABLET (20 MG), 2X/DAY
     Route: 048
  3. DORFLEX [Concomitant]
     Dosage: 40 DROPS, 1X/DAY
     Route: 048
  4. NAPROSYN                           /00256201/ [Concomitant]
     Dosage: 1 TABLET (250 MG), 3X/DAY
     Route: 048

REACTIONS (7)
  - Diabetes mellitus [Unknown]
  - Tendon pain [Unknown]
  - Musculoskeletal pain [Unknown]
  - Pain in extremity [Unknown]
  - Arthralgia [Unknown]
  - Arthralgia [Unknown]
  - Viral infection [Unknown]
